FAERS Safety Report 14787793 (Version 1)
Quarter: 2018Q2

REPORT INFORMATION
  Report Type: Spontaneous
  Country: US (occurrence: US)
  Receive Date: 20180422
  Receipt Date: 20180422
  Transmission Date: 20180711
  Serious: No
  Sender: FDA-Public Use
  Company Number: US-ASTRAZENECA-2018SE38329

PATIENT
  Sex: Female
  Weight: 49.9 kg

DRUGS (4)
  1. TUDORZA PRESSAIR [Suspect]
     Active Substance: ACLIDINIUM BROMIDE
     Indication: NASOPHARYNGITIS
     Route: 055
     Dates: start: 201711
  2. TUDORZA PRESSAIR [Suspect]
     Active Substance: ACLIDINIUM BROMIDE
     Indication: COUGH
     Route: 055
     Dates: start: 201711
  3. TUDORZA PRESSAIR [Suspect]
     Active Substance: ACLIDINIUM BROMIDE
     Indication: DYSPNOEA
     Route: 055
     Dates: start: 201711
  4. TUDORZA PRESSAIR [Suspect]
     Active Substance: ACLIDINIUM BROMIDE
     Indication: BRONCHITIS CHRONIC
     Route: 055
     Dates: start: 201711

REACTIONS (4)
  - Device failure [Unknown]
  - Dysgeusia [Unknown]
  - Device malfunction [Unknown]
  - Drug dose omission [Not Recovered/Not Resolved]
